FAERS Safety Report 10210149 (Version 5)
Quarter: 2014Q3

REPORT INFORMATION
  Report Type: Spontaneous
  Country: IT (occurrence: None)
  Receive Date: 20140528
  Receipt Date: 20140808
  Transmission Date: 20150326
  Serious: Yes (Hospitalization)
  Sender: FDA-Public Use
  Company Number: AUR-APL-2014-06098

PATIENT
  Age: 77 Year
  Sex: Female

DRUGS (6)
  1. DRAMION (VERAPAMIL HYDROCHLORIDE) [Suspect]
     Active Substance: VERAPAMIL HYDROCHLORIDE
     Indication: DIABETES MELLITUS
     Route: 048
     Dates: start: 20110530, end: 20140519
  2. TENORMIN [Concomitant]
     Active Substance: ATENOLOL
  3. CYMBALTA [Concomitant]
     Active Substance: DULOXETINE HYDROCHLORIDE
  4. LIPONORM [Concomitant]
     Active Substance: ATORVASTATIN
  5. METFORMIN [Suspect]
     Active Substance: METFORMIN HYDROCHLORIDE
     Indication: DIABETES MELLITUS
     Route: 048
     Dates: start: 20110530, end: 20140519
  6. COMBISARTAN [Concomitant]
     Active Substance: HYDROCHLOROTHIAZIDE\LOSARTAN POTASSIUM

REACTIONS (4)
  - Dysentery [None]
  - Vomiting [None]
  - Blood creatinine increased [None]
  - Hypoglycaemia [None]

NARRATIVE: CASE EVENT DATE: 20130426
